FAERS Safety Report 6274492-X (Version None)
Quarter: 2009Q3

REPORT INFORMATION
  Report Type: 
  Country: None (occurrence: None)
  Receive Date: 20090720
  Receipt Date: 20090715
  Transmission Date: 20100115
  Serious: Yes (Other)
  Sender: FDA-Public Use
  Company Number: US-AMGEN-STX352217

PATIENT
  Sex: Male
  Weight: 123 kg

DRUGS (11)
  1. SENSIPAR [Suspect]
     Indication: HYPERPARATHYROIDISM SECONDARY
     Route: 048
     Dates: start: 20090519, end: 20090616
  2. COZAAR [Concomitant]
     Dates: start: 20020101
  3. CALCITRIOL [Concomitant]
     Dates: start: 20080108
  4. PRO-AIR (PARKE DAVIS) [Concomitant]
     Route: 055
     Dates: start: 20010101
  5. PHOSLO [Concomitant]
     Dates: start: 20081204
  6. QVAR 40 [Concomitant]
     Dates: start: 20090210
  7. GENTAMYCIN SULFATE [Concomitant]
     Dates: start: 20081204
  8. SIMVASTATIN [Concomitant]
     Dates: start: 20080108
  9. VICODIN [Concomitant]
     Dates: start: 20071114
  10. LACTULOSE [Concomitant]
     Dates: start: 20090404
  11. FUROSEMIDE [Concomitant]
     Dates: start: 20080108

REACTIONS (2)
  - CHEST PAIN [None]
  - MUSCLE SPASMS [None]
